FAERS Safety Report 4621446-2 (Version None)
Quarter: 2005Q2

REPORT INFORMATION
  Report Type: 
  Country: None (occurrence: None)
  Receive Date: 20050317
  Receipt Date: 20041212
  Transmission Date: 20051028
  Serious: Yes (Other)
  Sender: FDA-Public Use
  Company Number: 2004109922

PATIENT
  Age: 15 Year
  Sex: Male
  Weight: 74.5 kg

DRUGS (9)
  1. VFEND [Suspect]
     Indication: INFECTION
     Dates: start: 20041210, end: 20041211
  2. AMIKACIN [Concomitant]
  3. ACILOVIR (ACICLOVIR) [Concomitant]
  4. VANCOMYCIN [Concomitant]
  5. ATOMOXETINE HYDROCHLORIDE (ATOMOXETINE HYDROCHLORIDE) [Concomitant]
  6. TRAZODONE HCL [Concomitant]
  7. FILGRASTIM (FILGRASTIM) [Concomitant]
  8. RISPERDAL [Concomitant]
  9. MEROPENEM (MEROPENEM) [Concomitant]

REACTIONS (2)
  - CONVULSION [None]
  - UNEVALUABLE EVENT [None]
